FAERS Safety Report 8849555 (Version 1)
Quarter: 2012Q4

REPORT INFORMATION
  Report Type: Spontaneous
  Country: US (occurrence: None)
  Receive Date: 20121018
  Receipt Date: 20121018
  Transmission Date: 20130627
  Serious: Yes (Other)
  Sender: FDA-Public Use
  Company Number: None

PATIENT
  Age: 40 Year
  Sex: Female
  Weight: 98.88 kg

DRUGS (1)
  1. INAPSINE [Suspect]
     Indication: MIGRAINE
     Dosage: 2.5 mg 1x IM
     Route: 030
     Dates: start: 20121014, end: 20121014

REACTIONS (9)
  - Panic reaction [None]
  - Anxiety [None]
  - Restlessness [None]
  - Fatigue [None]
  - Fear [None]
  - Psychomotor hyperactivity [None]
  - Hypertension [None]
  - Heart rate increased [None]
  - Flushing [None]
